FAERS Safety Report 6981433-6 (Version None)
Quarter: 2010Q3

REPORT INFORMATION
  Report Type: 
  Country: None (occurrence: None)
  Receive Date: 20100914
  Receipt Date: 20100512
  Transmission Date: 20110219
  Serious: No
  Sender: FDA-Public Use
  Company Number: US-BRISTOL-MYERS SQUIBB COMPANY-15102510

PATIENT
  Age: 40 Year
  Sex: Female

DRUGS (1)
  1. MEGACE [Suspect]
     Indication: WEIGHT DECREASED

REACTIONS (1)
  - AMENORRHOEA [None]
